FAERS Safety Report 8348803-5 (Version None)
Quarter: 2012Q2

REPORT INFORMATION
  Report Type: 
  Country: None (occurrence: None)
  Receive Date: 20120508
  Receipt Date: 20120426
  Transmission Date: 20120825
  Serious: Yes (Hospitalization, Other)
  Sender: FDA-Public Use
  Company Number: 2011MA001343

PATIENT
  Age: 65 Year
  Sex: Female
  Weight: 91.173 kg

DRUGS (28)
  1. COLCHICINE [Concomitant]
  2. ETODOLAC [Concomitant]
  3. HUMULIN INSULIN [Concomitant]
  4. GLUCOSE [Concomitant]
  5. KAYEXALATE [Concomitant]
  6. LASIX [Concomitant]
  7. ALPRAZOLAM [Concomitant]
  8. ANTIBIOTICS [Concomitant]
  9. CLINDAMYCIN [Concomitant]
  10. MS CONTIN [Concomitant]
  11. NORVASC [Concomitant]
  12. TYLENOL W/ CODEINE [Concomitant]
  13. AMITRIPTYLINE HCL [Concomitant]
  14. GLUCOPHAGE [Concomitant]
  15. HYDROCHLOROTHIAZIDE [Concomitant]
  16. IBUPROFEN [Concomitant]
  17. LIPITOR [Concomitant]
  18. NEURONTIN [Concomitant]
  19. ASPIRIN [Concomitant]
  20. ATENOLOL [Concomitant]
  21. TORADOL [Concomitant]
  22. LISINOPRIL [Concomitant]
  23. MONOPRIL [Concomitant]
  24. ALLOPURINOL [Concomitant]
  25. BENICAR [Concomitant]
  26. GLYBURIDE [Concomitant]
  27. METOCLOPRAMIDE [Suspect]
     Indication: GASTROOESOPHAGEAL REFLUX DISEASE
     Dosage: 10 MG; AC AND HS; PO
     Route: 048
     Dates: start: 20020501, end: 20090710
  28. METOCLOPRAMIDE [Suspect]
     Indication: DIABETIC GASTROPARESIS
     Dosage: 10 MG; AC AND HS; PO
     Route: 048
     Dates: start: 20020501, end: 20090710

REACTIONS (45)
  - NECK PAIN [None]
  - ABDOMINAL PAIN [None]
  - EXTRAPYRAMIDAL DISORDER [None]
  - EMOTIONAL DISORDER [None]
  - DIABETIC RETINOPATHY [None]
  - CATARACT [None]
  - RENAL FAILURE ACUTE [None]
  - PAROTITIS [None]
  - HAEMORRHOIDS [None]
  - TEMPOROMANDIBULAR JOINT SYNDROME [None]
  - NAUSEA [None]
  - VOMITING [None]
  - EARLY SATIETY [None]
  - MENTAL STATUS CHANGES [None]
  - TREMOR [None]
  - DYSKINESIA [None]
  - PAIN IN JAW [None]
  - AMNESIA [None]
  - DEMENTIA [None]
  - HIATUS HERNIA [None]
  - OESOPHAGITIS [None]
  - DIABETES MELLITUS INADEQUATE CONTROL [None]
  - DIABETIC NEUROPATHY [None]
  - GOUT [None]
  - CELLULITIS [None]
  - ANAEMIA [None]
  - MUSCULOSKELETAL PAIN [None]
  - BLISTER [None]
  - COGNITIVE DISORDER [None]
  - HYPOGLYCAEMIA [None]
  - DYSPNOEA EXERTIONAL [None]
  - DIVERTICULUM [None]
  - GASTRITIS [None]
  - CONFUSIONAL STATE [None]
  - MACULAR OEDEMA [None]
  - SPINAL DISORDER [None]
  - ECONOMIC PROBLEM [None]
  - IMPAIRED GASTRIC EMPTYING [None]
  - CEREBROVASCULAR ACCIDENT [None]
  - HYPERKALAEMIA [None]
  - TARDIVE DYSKINESIA [None]
  - MEMORY IMPAIRMENT [None]
  - JOINT CREPITATION [None]
  - RESTLESS LEGS SYNDROME [None]
  - COLONIC POLYP [None]
